FAERS Safety Report 15887825 (Version 1)
Quarter: 2019Q1

REPORT INFORMATION
  Report Type: Spontaneous
  Country: US (occurrence: US)
  Receive Date: 20190130
  Receipt Date: 20190130
  Transmission Date: 20190417
  Serious: Yes (Other)
  Sender: FDA-Public Use
  Company Number: US-ASTRAZENECA-2019SE11220

PATIENT
  Age: 24899 Day
  Sex: Male
  Weight: 94.8 kg

DRUGS (30)
  1. SPIRIVA [Concomitant]
     Active Substance: TIOTROPIUM BROMIDE MONOHYDRATE
     Dates: start: 20100501
  2. SYMBICORT [Concomitant]
     Active Substance: BUDESONIDE\FORMOTEROL FUMARATE DIHYDRATE
     Dates: start: 20100325
  3. CIALIS [Concomitant]
     Active Substance: TADALAFIL
     Dates: start: 20100425
  4. SULFAMETHOXAZOLE [Concomitant]
     Active Substance: SULFAMETHOXAZOLE
     Dates: start: 20100425
  5. NEXIUM [Suspect]
     Active Substance: ESOMEPRAZOLE MAGNESIUM
     Route: 048
     Dates: start: 2010, end: 2015
  6. HYDROCHLOROTHIAZIDE. [Concomitant]
     Active Substance: HYDROCHLOROTHIAZIDE
     Dates: start: 20100505
  7. VITAMIN B NOS [Concomitant]
     Active Substance: VITAMIN B
     Dates: start: 20110514
  8. KLOR-CON [Concomitant]
     Active Substance: POTASSIUM CHLORIDE
     Dates: start: 20100705
  9. METOPROLOL. [Concomitant]
     Active Substance: METOPROLOL
     Dates: start: 20110305
  10. PROCTOFOAM [Concomitant]
     Active Substance: PRAMOXINE HYDROCHLORIDE
     Dates: start: 20100425
  11. LORATADINE. [Concomitant]
     Active Substance: LORATADINE
     Dates: start: 20100425
  12. CEPHALEXIN. [Concomitant]
     Active Substance: CEPHALEXIN
     Dates: start: 20100425
  13. LISINOPRIL. [Concomitant]
     Active Substance: LISINOPRIL
     Dates: start: 20100501
  14. FOLIC ACID. [Concomitant]
     Active Substance: FOLIC ACID
     Dates: start: 20100305
  15. ADVAIR HFA [Concomitant]
     Active Substance: FLUTICASONE PROPIONATE\SALMETEROL XINAFOATE
     Dates: start: 20100906
  16. LISINOPRIL. [Concomitant]
     Active Substance: LISINOPRIL
     Dates: start: 20100915
  17. METHYLPREDNISOLON [Concomitant]
     Active Substance: METHYLPREDNISOLONE
     Dates: start: 20100425
  18. ALBUTEROL. [Concomitant]
     Active Substance: ALBUTEROL
     Dates: start: 20100605
  19. IPRATROPIUM [Concomitant]
     Active Substance: IPRATROPIUM
     Dates: start: 20100505
  20. CRESTOR [Concomitant]
     Active Substance: ROSUVASTATIN CALCIUM
     Dates: start: 20100425
  21. FLUTICASONE. [Concomitant]
     Active Substance: FLUTICASONE
     Dates: start: 20100425
  22. CLOBETASOL [Concomitant]
     Active Substance: CLOBETASOL
     Dates: start: 20100425
  23. DICLOFENAC [Concomitant]
     Active Substance: DICLOFENAC
     Dates: start: 20100425
  24. NEXIUM [Suspect]
     Active Substance: ESOMEPRAZOLE MAGNESIUM
     Route: 048
     Dates: start: 20100111
  25. LIPITOR [Concomitant]
     Active Substance: ATORVASTATIN CALCIUM
     Dates: start: 20100305
  26. FUROSEMIDE. [Concomitant]
     Active Substance: FUROSEMIDE
     Dates: start: 20100415
  27. VIAGRA [Concomitant]
     Active Substance: SILDENAFIL CITRATE
     Route: 048
     Dates: start: 20100501
  28. TAMSULOSIN [Concomitant]
     Active Substance: TAMSULOSIN
     Dates: start: 20100425
  29. VENTOLIN [Concomitant]
     Active Substance: ALBUTEROL SULFATE
     Dates: start: 20101005
  30. PROAIR HFA [Concomitant]
     Active Substance: ALBUTEROL SULFATE
     Dates: start: 20110305

REACTIONS (3)
  - Rebound effect [Unknown]
  - Rebound acid hypersecretion [Unknown]
  - Chronic kidney disease [Unknown]

NARRATIVE: CASE EVENT DATE: 20150702
